FAERS Safety Report 14470774 (Version 3)
Quarter: 2018Q2

REPORT INFORMATION
  Report Type: Report from Study
  Country: US (occurrence: US)
  Receive Date: 20180131
  Receipt Date: 20180517
  Transmission Date: 20180711
  Serious: Yes (Hospitalization)
  Sender: FDA-Public Use
  Company Number: US-ACTELION-A-US2018-165772

PATIENT
  Age: 64 Year
  Sex: Female
  Weight: 97.52 kg

DRUGS (3)
  1. COUMADIN [Concomitant]
     Active Substance: WARFARIN SODIUM
  2. VELETRI [Suspect]
     Active Substance: EPOPROSTENOL
     Indication: PULMONARY ARTERIAL HYPERTENSION
     Dosage: 35 NG/KG, PER MIN
     Route: 042
  3. SILDENAFIL CITRATE. [Concomitant]
     Active Substance: SILDENAFIL CITRATE

REACTIONS (15)
  - Chest pain [Unknown]
  - Confusional state [Recovering/Resolving]
  - Dyspnoea exertional [Unknown]
  - Device dislocation [Unknown]
  - Pruritus [Unknown]
  - Pain in jaw [Unknown]
  - Device connection issue [Recovering/Resolving]
  - Skin irritation [Unknown]
  - Loss of consciousness [Recovering/Resolving]
  - Drug dose omission [Recovering/Resolving]
  - Hypotension [Recovering/Resolving]
  - Device occlusion [Recovering/Resolving]
  - Device alarm issue [Recovering/Resolving]
  - Palpitations [Unknown]
  - Urticaria [Unknown]

NARRATIVE: CASE EVENT DATE: 20180121
